FAERS Safety Report 5880464-7 (Version None)
Quarter: 2008Q3

REPORT INFORMATION
  Report Type: 
  Country: None (occurrence: None)
  Receive Date: 20080912
  Receipt Date: 20080606
  Transmission Date: 20090109
  Serious: No
  Sender: FDA-Public Use
  Company Number: US-ABBOTT-08P-163-0452416-00

PATIENT
  Sex: Female
  Weight: 54.48 kg

DRUGS (8)
  1. HUMIRA [Suspect]
     Indication: CROHN'S DISEASE
     Route: 058
     Dates: start: 20080501, end: 20080501
  2. HUMIRA [Suspect]
     Route: 058
     Dates: start: 20080515, end: 20080515
  3. JOLESSA GENERIC [Concomitant]
     Indication: CONTRACEPTION
     Route: 048
  4. CYCLOBENAZAPENDINE HCL [Concomitant]
     Indication: DRUG USE FOR UNKNOWN INDICATION
     Route: 048
  5. ACETAMINOPHEN [Concomitant]
     Indication: PAIN
     Route: 048
  6. IBUPROFEN [Concomitant]
     Indication: PAIN
     Route: 048
  7. FOLIC ACID [Concomitant]
     Indication: VITAMIN SUPPLEMENTATION
     Route: 048
  8. ESOMEPRAZOLE MAGNESIUM [Concomitant]
     Indication: GASTROOESOPHAGEAL REFLUX DISEASE
     Route: 048

REACTIONS (11)
  - ABDOMINAL PAIN [None]
  - FORMICATION [None]
  - INJECTION SITE ERYTHEMA [None]
  - INJECTION SITE IRRITATION [None]
  - INJECTION SITE PAIN [None]
  - INJECTION SITE SWELLING [None]
  - INJECTION SITE URTICARIA [None]
  - INJECTION SITE WARMTH [None]
  - PRURITUS GENERALISED [None]
  - RASH MACULAR [None]
  - SCAR [None]
